FAERS Safety Report 4914354-0 (Version None)
Quarter: 2006Q1

REPORT INFORMATION
  Report Type: 
  Country: None (occurrence: None)
  Receive Date: 20060213
  Receipt Date: 20060201
  Transmission Date: 20060701
  Serious: Yes (Hospitalization)
  Sender: FDA-Public Use
  Company Number: 2005-04325

PATIENT
  Age: 74 Year
  Sex: Female

DRUGS (11)
  1. FERRLECIT [Suspect]
     Indication: IRON DEFICIENCY ANAEMIA
     Dosage: 125 MG DAILY X 5 DAYS INTRAVENOUS
     Route: 042
     Dates: start: 20051018, end: 20051022
  2. FERRLECIT [Suspect]
     Indication: RENAL FAILURE CHRONIC
     Dosage: 125 MG DAILY X 5 DAYS INTRAVENOUS
     Route: 042
     Dates: start: 20051018, end: 20051022
  3. NOVOLOG 70/30 (INSULIN ASPART) [Concomitant]
  4. PROCRIT (ERHTHROPOIETIN) [Concomitant]
  5. SENOKOT [Concomitant]
  6. MAG TAB [Concomitant]
  7. PROTONIX ^WYETH-AYERST^ (PANTOPRAZOLE SODIUM) [Concomitant]
  8. AVANDIA [Concomitant]
  9. ALLOPURINOL [Concomitant]
  10. MORPHINE [Concomitant]
  11. IMDUR [Concomitant]

REACTIONS (7)
  - INJECTION SITE DESQUAMATION [None]
  - INJECTION SITE ERYTHEMA [None]
  - INJECTION SITE EXTRAVASATION [None]
  - INJECTION SITE REACTION [None]
  - SKIN EXFOLIATION [None]
  - SKIN NECROSIS [None]
  - SKIN ULCER [None]
